FAERS Safety Report 6565219-2 (Version None)
Quarter: 2010Q1

REPORT INFORMATION
  Report Type: 
  Country: None (occurrence: None)
  Receive Date: 20100201
  Receipt Date: 20100129
  Transmission Date: 20100710
  Serious: Yes (Other)
  Sender: FDA-Public Use
  Company Number: Z0002986A

PATIENT
  Sex: Male
  Weight: 92 kg

DRUGS (2)
  1. PAZOPANIB [Suspect]
     Indication: RENAL CELL CARCINOMA
     Dosage: 800MG PER DAY
     Route: 048
     Dates: start: 20091208
  2. ASPIRIN [Concomitant]
     Dosage: 100MG PER DAY

REACTIONS (1)
  - AORTIC THROMBOSIS [None]
